FAERS Safety Report 17006293 (Version 3)
Quarter: 2023Q1

REPORT INFORMATION
  Report Type: Report from Study
  Country: US (occurrence: US)
  Receive Date: 20191107
  Receipt Date: 20230207
  Transmission Date: 20230417
  Serious: Yes (Death, Hospitalization)
  Sender: FDA-Public Use
  Company Number: US-BAUSCH-BL-2019-059685

PATIENT
  Age: 17 Year
  Sex: Female
  Weight: 69.9 kg

DRUGS (3)
  1. XENAZINE [Suspect]
     Active Substance: TETRABENAZINE
     Indication: Huntington^s disease
     Route: 048
     Dates: start: 20180109
  2. XENAZINE [Suspect]
     Active Substance: TETRABENAZINE
     Dosage: INCREASED TO 4 A DAY
     Route: 048
     Dates: start: 20191112
  3. XENAZINE [Suspect]
     Active Substance: TETRABENAZINE
     Route: 048
     Dates: start: 202003

REACTIONS (3)
  - Death [Fatal]
  - Gastrointestinal disorder [Unknown]
  - Pneumonia aspiration [Unknown]

NARRATIVE: CASE EVENT DATE: 20230131
